FAERS Safety Report 6891440-X (Version None)
Quarter: 2010Q3

REPORT INFORMATION
  Report Type: 
  Country: None (occurrence: None)
  Receive Date: 20100731
  Receipt Date: 20070516
  Transmission Date: 20110219
  Serious: No
  Sender: FDA-Public Use
  Company Number: US-PFIZER INC-2007036707

PATIENT
  Sex: Male
  Weight: 81.818 kg

DRUGS (4)
  1. NORVASC [Suspect]
     Indication: HYPERTENSION
     Dates: start: 19950101, end: 20061201
  2. LIPITOR [Suspect]
     Indication: BLOOD CHOLESTEROL INCREASED
     Dates: start: 19950101, end: 20061201
  3. CADUET [Suspect]
     Indication: HYPERTENSION
     Dosage: 10/80 MG
     Dates: start: 20061201
  4. CADUET [Suspect]
     Indication: BLOOD CHOLESTEROL INCREASED

REACTIONS (1)
  - OEDEMA PERIPHERAL [None]
